FAERS Safety Report 7173799-1 (Version None)
Quarter: 2010Q4

REPORT INFORMATION
  Report Type: 
  Country: None (occurrence: None)
  Receive Date: 20101219
  Receipt Date: 20100310
  Transmission Date: 20110411
  Serious: No
  Sender: FDA-Public Use
  Company Number: US-AMGEN-KDL398785

PATIENT

DRUGS (2)
  1. ENBREL [Suspect]
     Indication: PSORIASIS
     Dosage: 50 MG, QWK
     Route: 058
  2. ENBREL [Suspect]
     Indication: ARTHRITIS

REACTIONS (6)
  - FALL [None]
  - NEPHROLITHIASIS [None]
  - OSTEOARTHRITIS [None]
  - PSORIASIS [None]
  - ROTATOR CUFF SYNDROME [None]
  - WRIST FRACTURE [None]
